FAERS Safety Report 12546957 (Version 3)
Quarter: 2016Q3

REPORT INFORMATION
  Report Type: Report from Study
  Country: CA (occurrence: CA)
  Receive Date: 20160711
  Receipt Date: 20160815
  Transmission Date: 20161109
  Serious: Yes (Other)
  Sender: FDA-Public Use
  Company Number: PHHY2016CA094640

PATIENT
  Age: 28 Year
  Sex: Male

DRUGS (1)
  1. GILENYA [Suspect]
     Active Substance: FINGOLIMOD HYDROCHLORIDE
     Indication: PRODUCT USED FOR UNKNOWN INDICATION
     Dosage: UNK
     Route: 048
     Dates: start: 20160516

REACTIONS (5)
  - Accidental overdose [Unknown]
  - Vision blurred [Unknown]
  - Vomiting [Unknown]
  - Vision blurred [Recovered/Resolved]
  - Amblyopia [Unknown]

NARRATIVE: CASE EVENT DATE: 20160703
